FAERS Safety Report 8165683-1 (Version None)
Quarter: 2012Q1

REPORT INFORMATION
  Report Type: 
  Country: None (occurrence: None)
  Receive Date: 20120223
  Receipt Date: 20120223
  Transmission Date: 20120608
  Serious: Yes (Other)
  Sender: FDA-Public Use
  Company Number: None

PATIENT
  Age: 72 Year
  Sex: Female
  Weight: 71.6683 kg

DRUGS (2)
  1. ATELVIA [Suspect]
     Indication: OSTEOPOROSIS
     Dosage: 1 PILL WEEKLY ORALLY
     Route: 048
     Dates: start: 20111113
  2. ATELVIA [Suspect]
     Dates: start: 20111120

REACTIONS (2)
  - DIARRHOEA [None]
  - WEIGHT DECREASED [None]
